FAERS Safety Report 13705119 (Version 2)
Quarter: 2017Q3

REPORT INFORMATION
  Report Type: Spontaneous
  Country: US (occurrence: US)
  Receive Date: 20170630
  Receipt Date: 20170720
  Transmission Date: 20171127
  Serious: No
  Sender: FDA-Public Use
  Company Number: US-CELGENEUS-USA-20170606110

PATIENT
  Sex: Male

DRUGS (2)
  1. CLOBET [Concomitant]
     Indication: PRODUCT USED FOR UNKNOWN INDICATION
     Route: 065
  2. OTEZLA [Suspect]
     Active Substance: APREMILAST
     Indication: PSORIASIS
     Dosage: 60 MILLIGRAM
     Route: 048
     Dates: end: 20170525

REACTIONS (3)
  - Feeling abnormal [Recovering/Resolving]
  - Psoriasis [Recovering/Resolving]
  - Pain of skin [Recovering/Resolving]
